FAERS Safety Report 5304108-8 (Version None)
Quarter: 2007Q2

REPORT INFORMATION
  Report Type: 
  Country: None (occurrence: None)
  Receive Date: 20070422
  Receipt Date: 20070409
  Transmission Date: 20071010
  Serious: Yes (Death, Other)
  Sender: FDA-Public Use
  Company Number: US-ELI_LILLY_AND_COMPANY-US200611004261

PATIENT
  Age: 79 Year
  Sex: Female

DRUGS (2)
  1. XIGRIS [Suspect]
     Indication: SEPSIS
     Dosage: UNK, UNK
     Route: 042
     Dates: start: 20061028, end: 20061031
  2. ENOXAPARIN SODIUM [Concomitant]
     Dosage: 40 MG, UNK
     Route: 058
     Dates: start: 20061027, end: 20061027

REACTIONS (4)
  - ACUTE RESPIRATORY FAILURE [None]
  - HAEMORRHAGE [None]
  - SEPSIS [None]
  - SEPTIC SHOCK [None]
